FAERS Safety Report 8534553 (Version 2)
Quarter: 2012Q4

REPORT INFORMATION
  Report Type: 
  Country: US (occurrence: US)
  Receive Date: 20120427
  Receipt Date: 20120924
  Transmission Date: 20130627
  Serious: Yes (Other)
  Sender: FDA-Public Use
  Company Number: US-PFIZER INC-2012104056

PATIENT
  Age: 85 Year
  Sex: Female
  Weight: 49.4 kg

DRUGS (4)
  1. DIMETAPP [Suspect]
     Indication: COUGH
     Dosage: 4 teaspoons, once
     Dates: start: 20120424, end: 20120424
  2. DIMETAPP [Suspect]
     Indication: RHINORRHOEA
  3. DIMETAPP [Suspect]
     Dosage: UNK
  4. PANTOPRAZOLE [Concomitant]
     Indication: PROPHYLAXIS
     Dosage: 40 mg, daily

REACTIONS (7)
  - Aphagia [Recovered/Resolved]
  - Pharyngeal oedema [Recovered/Resolved]
  - Oropharyngeal pain [Recovered/Resolved]
  - Abdominal pain upper [Recovered/Resolved]
  - Dysgeusia [Recovered/Resolved]
  - Flatulence [Recovered/Resolved]
  - Asthenia [Recovered/Resolved]
